FAERS Safety Report 25399379 (Version 2)
Quarter: 2025Q3

REPORT INFORMATION
  Report Type: Spontaneous
  Country: AR (occurrence: AR)
  Receive Date: 20250605
  Receipt Date: 20250714
  Transmission Date: 20251021
  Serious: Yes (Hospitalization, Other)
  Sender: SANDOZ
  Company Number: AR-002147023-NVSC2025AR016085

PATIENT
  Age: 60 Year
  Sex: Female

DRUGS (6)
  1. FULVESTRANT [Suspect]
     Active Substance: FULVESTRANT
     Indication: Breast cancer
     Dosage: 500 MG, QMO (AMPOULE) ; START DATE: 07-APR-2025 00:00
     Route: 065
  2. FULVESTRANT [Suspect]
     Active Substance: FULVESTRANT
     Dosage: 500 MG, QMO (AMPOULE) ; START DATE: 22-JAN-2024 00:00
     Route: 065
  3. FULVESTRANT [Suspect]
     Active Substance: FULVESTRANT
     Indication: Breast cancer metastatic
     Route: 065
  4. KISQALI [Suspect]
     Active Substance: RIBOCICLIB SUCCINATE
     Dosage: 2 DOSAGE FORM, QD; START DATE; ??-MAR-2024 00:00
     Route: 048
  5. KISQALI [Suspect]
     Active Substance: RIBOCICLIB SUCCINATE
     Dosage: 3 DOSAGE FORM, QD; START DATE: ??-FEB-2024 00:00
     Route: 065
  6. KISQALI [Suspect]
     Active Substance: RIBOCICLIB SUCCINATE
     Indication: Breast cancer metastatic
     Route: 065

REACTIONS (23)
  - Tremor [Unknown]
  - Contusion [Unknown]
  - Haematoma [Unknown]
  - Malignant neoplasm of pleura [Unknown]
  - Cardiac failure [Unknown]
  - Hypoaesthesia oral [Unknown]
  - White blood cell count decreased [Unknown]
  - Vein disorder [Unknown]
  - Feeling abnormal [Unknown]
  - Ill-defined disorder [Unknown]
  - Dyspnoea [Unknown]
  - Palpitations [Unknown]
  - Decreased immune responsiveness [Unknown]
  - Echocardiogram abnormal [Unknown]
  - Nervousness [Unknown]
  - Panic attack [Unknown]
  - Muscle spasms [Unknown]
  - Blood pressure increased [Unknown]
  - Musculoskeletal stiffness [Unknown]
  - Muscle spasticity [Unknown]
  - Trigger points [Unknown]
  - Vein rupture [Unknown]
  - Blood glucose increased [Unknown]

NARRATIVE: CASE EVENT DATE: 20240201
